FAERS Safety Report 9415183 (Version 2)
Quarter: 2013Q3

REPORT INFORMATION
  Report Type: Report from Study
  Country: US (occurrence: US)
  Receive Date: 20130723
  Receipt Date: 20130806
  Transmission Date: 20140515
  Serious: Yes (Hospitalization)
  Sender: FDA-Public Use
  Company Number: US-VERTEX PHARMACEUTICALS INC-2013-008167

PATIENT
  Age: 27 Year
  Sex: Male
  Weight: 57.2 kg

DRUGS (19)
  1. VX-770 [Suspect]
     Indication: CYSTIC FIBROSIS
     Dosage: 150 MG, BID
     Route: 048
     Dates: start: 20120801
  2. ADVAIR [Concomitant]
     Dosage: 250 ?G, BID INHALE
     Route: 045
  3. ALBUTEROL SULFATE [Concomitant]
     Indication: COUGH
     Dosage: 3ML EVERY 3-4 HOURS PRN
     Route: 045
  4. ALBUTEROL SULFATE [Concomitant]
     Indication: WHEEZING
  5. ALBUTEROL SULFATE [Concomitant]
     Indication: DYSPNOEA
  6. AQUADEKS [Concomitant]
     Dosage: 2 CAPSULES, 100 ?G, QD
     Route: 048
  7. BOOST [Concomitant]
     Dosage: 237 ML, BID
     Route: 048
  8. BROVANA [Concomitant]
     Dosage: 2ML
     Route: 045
  9. CALCIUM [Concomitant]
     Dosage: 1500 MG, QD
     Route: 048
  10. CYPROHEPTADINE [Concomitant]
     Dosage: 4 MG, TID
     Route: 048
  11. MEPHYTON [Concomitant]
     Dosage: 5 MG, QD
     Route: 048
  12. PANTOPRAZOLE [Concomitant]
     Dosage: 40 MG, QD
     Route: 048
  13. PROAIR HFA [Concomitant]
     Indication: COUGH
     Dosage: 90 ?G, 2 PUFFS EVERY 3-4 HOURS PRN
     Route: 045
  14. PROAIR HFA [Concomitant]
     Indication: WHEEZING
  15. PROAIR HFA [Concomitant]
     Indication: DYSPNOEA
  16. PULMOZYME [Concomitant]
     Dosage: 2.5 ML, QD
     Route: 045
  17. SODIUM CHLORIDE [Concomitant]
     Dosage: 4 ML, BID
     Route: 045
  18. TOBI [Concomitant]
     Dosage: 5 ML, BID CYCLE ON/OFF EVERY 28 DAYS
     Route: 045
  19. ZENPEP [Concomitant]
     Dosage: 4-5 CAPSULES WITH MEANS AND 3 CAPSULES WITH SNACKS

REACTIONS (2)
  - Infective pulmonary exacerbation of cystic fibrosis [Recovered/Resolved]
  - Treatment noncompliance [Unknown]
